FAERS Safety Report 16311232 (Version 1)
Quarter: 2019Q2

REPORT INFORMATION
  Report Type: Spontaneous
  Country: US (occurrence: US)
  Receive Date: 20190514
  Receipt Date: 20190514
  Transmission Date: 20190711
  Serious: No
  Sender: FDA-Public Use
  Company Number: US-MAYNE PHARMA-2018MYN001563

PATIENT

DRUGS (3)
  1. LIOTHYRONINE [Suspect]
     Active Substance: LIOTHYRONINE
     Indication: HYPOTHYROIDISM
     Dosage: 2.5 MCG, BID
     Route: 048
     Dates: start: 201808
  2. LIOTHYRONINE [Suspect]
     Active Substance: LIOTHYRONINE
     Dosage: 2.5 MCG, QD
     Route: 048
     Dates: start: 2018
  3. LEVOTHYROXINE. [Suspect]
     Active Substance: LEVOTHYROXINE
     Indication: PRODUCT USED FOR UNKNOWN INDICATION

REACTIONS (14)
  - Palpitations [Unknown]
  - Heart rate increased [Unknown]
  - Paraesthesia [Unknown]
  - Chest pain [Unknown]
  - Tremor [Unknown]
  - Pain in jaw [Unknown]
  - Muscle spasms [Unknown]
  - Gastrooesophageal reflux disease [Unknown]
  - Headache [Unknown]
  - Dyspnoea [Unknown]
  - Dizziness [Recovering/Resolving]
  - Cardiac disorder [Unknown]
  - Fatigue [Unknown]
  - Electrocardiogram abnormal [Recovered/Resolved]

NARRATIVE: CASE EVENT DATE: 2018
